FAERS Safety Report 17086786 (Version 2)
Quarter: 2020Q1

REPORT INFORMATION
  Report Type: Report from Study
  Country: GB (occurrence: GB)
  Receive Date: 20191128
  Receipt Date: 20200108
  Transmission Date: 20200409
  Serious: Yes (Hospitalization)
  Sender: FDA-Public Use
  Company Number: GB-ROCHE-2479955

PATIENT
  Age: 69 Year
  Sex: Male

DRUGS (1)
  1. TENECTEPLASE [Suspect]
     Active Substance: TENECTEPLASE
     Indication: ISCHAEMIC STROKE
     Dosage: AT 15:19
     Route: 042
     Dates: start: 20191023

REACTIONS (1)
  - Neurological decompensation [Recovering/Resolving]

NARRATIVE: CASE EVENT DATE: 20191028
